FAERS Safety Report 14256216 (Version 3)
Quarter: 2018Q1

REPORT INFORMATION
  Report Type: Spontaneous
  Country: JP (occurrence: JP)
  Receive Date: 20171206
  Receipt Date: 20180306
  Transmission Date: 20180508
  Serious: Yes (Death)
  Sender: FDA-Public Use
  Company Number: JP-CELGENEUS-JPN-20171201006

PATIENT
  Age: 79 Year
  Sex: Female
  Weight: 48 kg

DRUGS (10)
  1. ABRAXANE [Suspect]
     Active Substance: PACLITAXEL
     Dosage: 60 MILLIGRAM/SQ. METER
     Route: 065
  2. GEMCITABINE [Suspect]
     Active Substance: GEMCITABINE\GEMCITABINE HYDROCHLORIDE
     Indication: PANCREATIC CARCINOMA
     Dosage: 1000 MG/SQ.METER/DAY
     Route: 041
  3. URSODEOXYCHOLIC ACID [Concomitant]
     Active Substance: URSODIOL
     Indication: HEPATIC STEATOSIS
     Dosage: 600 MILLIGRAM
     Route: 048
     Dates: start: 20161027, end: 20170713
  4. ABRAXANE [Suspect]
     Active Substance: PACLITAXEL
     Dosage: 179.38 MILLIGRAM
     Route: 065
     Dates: start: 20170525, end: 20170706
  5. PANCRELIPASE. [Concomitant]
     Active Substance: PANCRELIPASE
     Indication: HEPATIC STEATOSIS
     Dosage: 1800 MILLIGRAM
     Route: 048
     Dates: start: 20161027, end: 20170713
  6. GEMCITABINE [Suspect]
     Active Substance: GEMCITABINE\GEMCITABINE HYDROCHLORIDE
     Dosage: 1435 MILLIGRAM
     Route: 041
     Dates: start: 20170525, end: 20170706
  7. FAMOTIDINE. [Concomitant]
     Active Substance: FAMOTIDINE
     Indication: CHRONIC GASTRITIS
     Dosage: 20 MILLIGRAM
     Route: 048
     Dates: start: 20161027, end: 20170713
  8. CLOSTRIDIUM BUTYRICUM [Concomitant]
     Active Substance: CLOSTRIDIUM BUTYRICUM SPORES STRAIN M-55
     Indication: CONSTIPATION
     Dosage: 3 GRAM
     Route: 048
     Dates: start: 20161027, end: 20170713
  9. ABRAXANE [Suspect]
     Active Substance: PACLITAXEL
     Indication: PANCREATIC CARCINOMA
     Dosage: 100 MILLIGRAM/SQ. METER
     Route: 041
  10. ALFACALCIDOL [Concomitant]
     Active Substance: ALFACALCIDOL
     Indication: OSTEOPOROSIS
     Dosage: .5 MICROGRAM
     Route: 048
     Dates: start: 20161027, end: 20170713

REACTIONS (2)
  - Arthralgia [Unknown]
  - Interstitial lung disease [Fatal]

NARRATIVE: CASE EVENT DATE: 20170714
